FAERS Safety Report 6006799-5 (Version None)
Quarter: 2008Q4

REPORT INFORMATION
  Report Type: 
  Country: None (occurrence: None)
  Receive Date: 20081217
  Receipt Date: 20080721
  Transmission Date: 20090506
  Serious: No
  Sender: FDA-Public Use
  Company Number: US-ASTRAZENECA-2004UW18278

PATIENT
  Age: 68 Year
  Sex: Female
  Weight: 69.9 kg

DRUGS (3)
  1. CRESTOR [Suspect]
     Indication: HYPERCHOLESTEROLAEMIA
     Route: 048
     Dates: start: 20040801
  2. CALCIUM SUPPLEMENTS [Concomitant]
  3. ASPIRIN [Concomitant]

REACTIONS (4)
  - DECREASED APPETITE [None]
  - NAUSEA [None]
  - NEPHROLITHIASIS [None]
  - WEIGHT DECREASED [None]
